FAERS Safety Report 4314360-3 (Version None)
Quarter: 2004Q1

REPORT INFORMATION
  Report Type: 
  Country: None (occurrence: None)
  Receive Date: 20040308
  Receipt Date: 20040223
  Transmission Date: 20041129
  Serious: Yes (Death)
  Sender: FDA-Public Use
  Company Number: USA-2003-0011395

PATIENT
  Age: 62 Year
  Sex: Female
  Weight: 38.1 kg

DRUGS (2)
  1. MORPHINE SULFATE [Suspect]
  2. HYDROMORPHONE HCL [Suspect]

REACTIONS (7)
  - COMA [None]
  - CONDITION AGGRAVATED [None]
  - DYSPNOEA [None]
  - LUNG NEOPLASM MALIGNANT [None]
  - OVERDOSE [None]
  - PULMONARY CONGESTION [None]
  - RESPIRATORY DEPRESSION [None]
